FAERS Safety Report 12440175 (Version 1)
Quarter: 2016Q2

REPORT INFORMATION
  Report Type: Report from Study
  Country: US (occurrence: US)
  Receive Date: 20160606
  Receipt Date: 20160606
  Transmission Date: 20160815
  Serious: No
  Sender: FDA-Public Use
  Company Number: US-AMGEN-USASL2015120027

PATIENT
  Age: 61 Year
  Sex: Male

DRUGS (13)
  1. PROCRIT [Suspect]
     Active Substance: ERYTHROPOIETIN
     Indication: NEPHROGENIC ANAEMIA
     Dosage: 5000 UNIT, Q4WK
     Route: 058
     Dates: start: 20150224
  2. CARISOPRODOL. [Concomitant]
     Active Substance: CARISOPRODOL
     Dosage: 1 DF, AT BEDTIME AS NEEDED
     Route: 048
     Dates: start: 20130812
  3. LABETALOL HCL [Concomitant]
     Active Substance: LABETALOL HYDROCHLORIDE
     Dosage: 1 DF, EVERY 12 HOURS DAILY
     Route: 048
     Dates: start: 20131231
  4. SODIUM BICARBONATE. [Concomitant]
     Active Substance: SODIUM BICARBONATE
     Dosage: 1 DF, BID
     Route: 048
     Dates: start: 20120828
  5. TYLENOL [Concomitant]
     Active Substance: ACETAMINOPHEN
     Dosage: 1 DF, EVERY 4-6 HOURS AS NEEDED
  6. FERROUS SULFATE. [Concomitant]
     Active Substance: FERROUS SULFATE
     Dosage: 1 DF, BID
     Route: 048
     Dates: start: 20141219
  7. FLUTICASONE PROPIONATE. [Concomitant]
     Active Substance: FLUTICASONE PROPIONATE
     Dosage: UNK
     Dates: start: 20131016
  8. NIFEDIPINE. [Concomitant]
     Active Substance: NIFEDIPINE
     Dosage: 1 DF, QD
     Route: 048
  9. PROAIR HFA [Concomitant]
     Active Substance: ALBUTEROL SULFATE
     Dosage: UNK
     Dates: start: 20120109
  10. CALCITRIOL. [Concomitant]
     Active Substance: CALCITRIOL
     Dosage: 1 DF, DAILY
     Route: 048
     Dates: start: 20150210
  11. FUROSEMIDE. [Concomitant]
     Active Substance: FUROSEMIDE
     Dosage: 1 DF, AS NECESSARY
     Route: 048
     Dates: start: 20120529
  12. COLACE [Concomitant]
     Active Substance: DOCUSATE SODIUM
     Dosage: 1 DF, BID
     Route: 048
     Dates: start: 20120529
  13. HYDROXYZINE HYDROCHLORIDE. [Concomitant]
     Active Substance: HYDROXYZINE HYDROCHLORIDE
     Dosage: 1 DF, TID
     Route: 048
     Dates: start: 20130812

REACTIONS (7)
  - Headache [Unknown]
  - Chills [Unknown]
  - Arthralgia [Unknown]
  - Fatigue [Unknown]
  - Joint stiffness [Unknown]
  - Pruritus [Unknown]
  - Dry eye [Unknown]
